FAERS Safety Report 5026067-8 (Version None)
Quarter: 2006Q2

REPORT INFORMATION
  Report Type: 
  Country: None (occurrence: None)
  Receive Date: 20060612
  Receipt Date: 20060612
  Transmission Date: 20061013
  Serious: Yes (Life-Threatening, Hospitalization)
  Sender: FDA-Public Use
  Company Number: None

PATIENT
  Age: 17 Year
  Sex: Female

DRUGS (1)
  1. CO-TRIMOXAZOLE [Suspect]
     Indication: URINARY TRACT INFECTION
     Dates: start: 20060513, end: 20060526

REACTIONS (5)
  - OBSTRUCTIVE AIRWAYS DISORDER [None]
  - PHARYNGOLARYNGEAL PAIN [None]
  - STEVENS-JOHNSON SYNDROME [None]
  - VAGINAL DISCHARGE [None]
  - VAGINAL SWELLING [None]
